FAERS Safety Report 12053297 (Version 1)
Quarter: 2016Q1

REPORT INFORMATION
  Report Type: Spontaneous
  Country: US (occurrence: US)
  Receive Date: 20160209
  Receipt Date: 20160209
  Transmission Date: 20160526
  Serious: Yes (Hospitalization, Disabling, Other)
  Sender: FDA-Public Use
  Company Number: US-BAYER-2016-017722

PATIENT
  Sex: Female

DRUGS (3)
  1. ALKA-SELTZER PLUS DAY AND NIGHT MULTI-SYMPTOM COLD AND FLU FORMULA [Suspect]
     Active Substance: ACETAMINOPHEN\DEXTROMETHORPHAN HYDROBROMIDE\DOXYLAMINE SUCCINATE\PHENYLEPHRINE
     Indication: INFLUENZA
     Dosage: UNK
     Route: 048
     Dates: start: 20131217, end: 20131218
  2. ALKA-SELTZER PLUS DAY AND NIGHT MULTI-SYMPTOM COLD AND FLU FORMULA [Suspect]
     Active Substance: ACETAMINOPHEN\DEXTROMETHORPHAN HYDROBROMIDE\DOXYLAMINE SUCCINATE\PHENYLEPHRINE
     Indication: INFLUENZA
     Dosage: UNK
     Dates: start: 20131217, end: 20131218
  3. TYLENOL [Suspect]
     Active Substance: ACETAMINOPHEN
     Dosage: UNK
     Dates: start: 20131218

REACTIONS (59)
  - Toxic epidermal necrolysis [None]
  - Impaired gastric emptying [None]
  - Eye irritation [None]
  - Lacrimation increased [None]
  - Deformity [None]
  - Oropharyngeal pain [None]
  - Pharyngitis [None]
  - Rash maculo-papular [None]
  - Feeding disorder [None]
  - Jaundice [None]
  - Encephalopathy [None]
  - Urinary tract infection pseudomonal [None]
  - Scar [None]
  - Conjunctivitis [None]
  - Chills [None]
  - Headache [None]
  - Upper gastrointestinal haemorrhage [None]
  - Hepatitis cholestatic [None]
  - Sepsis [None]
  - Malnutrition [None]
  - Metabolic alkalosis [None]
  - Pneumonia [None]
  - Acute kidney injury [None]
  - Extraskeletal ossification [None]
  - Keratitis [None]
  - Eye pain [None]
  - Acute hepatic failure [None]
  - Vaginal disorder [None]
  - Rash [None]
  - Pyrexia [None]
  - Hypernatraemia [None]
  - Dry eye [None]
  - Eye pruritus [None]
  - Malaise [None]
  - Mucosal exfoliation [None]
  - Liver function test increased [None]
  - Respiratory failure [None]
  - Ischaemic hepatitis [None]
  - Pleural effusion [None]
  - Thrombocytopenia [None]
  - Hepato-lenticular degeneration [None]
  - Ventricular tachycardia [None]
  - Subcutaneous abscess [None]
  - Eye discharge [None]
  - Photophobia [None]
  - Atrial fibrillation [None]
  - Septic shock [None]
  - Urinary tract infection [None]
  - Pneumothorax [None]
  - Haemorrhagic anaemia [None]
  - Pseudomonas infection [None]
  - Renal tubular necrosis [None]
  - Azotaemia [None]
  - Gastritis [None]
  - Cachexia [None]
  - Eye injury [None]
  - Ocular hyperaemia [None]
  - Wound haemorrhage [None]
  - Skin necrosis [None]

NARRATIVE: CASE EVENT DATE: 20131218
